FAERS Safety Report 23131991 (Version 1)
Quarter: 2023Q4

REPORT INFORMATION
  Report Type: Spontaneous
  Country: IT (occurrence: IT)
  Receive Date: 20231101
  Receipt Date: 20231101
  Transmission Date: 20240110
  Serious: Yes (Other)
  Sender: FDA-Public Use
  Company Number: IT-MINISAL02-950233

PATIENT
  Age: 72 Year
  Sex: Male

DRUGS (10)
  1. ACETAMINOPHEN [Suspect]
     Active Substance: ACETAMINOPHEN
     Indication: Renal colic
     Dosage: UNK
     Route: 048
     Dates: start: 20231004
  2. ACETAMINOPHEN [Suspect]
     Active Substance: ACETAMINOPHEN
     Indication: Pyrexia
  3. MORPHINE SULFATE [Suspect]
     Active Substance: MORPHINE SULFATE
     Indication: Pyrexia
     Dosage: UNK
     Route: 065
     Dates: start: 20231004
  4. MORPHINE SULFATE [Suspect]
     Active Substance: MORPHINE SULFATE
     Indication: Renal colic
  5. IRBESARTAN [Concomitant]
     Active Substance: IRBESARTAN
     Indication: Product used for unknown indication
     Dosage: 300 MILLIGRAM (300 MG 1/2 CP DOPO PRANZO)
     Route: 048
  6. ASPIRIN [Concomitant]
     Active Substance: ASPIRIN
     Indication: Product used for unknown indication
     Dosage: 100 MILLIGRAM
     Route: 048
  7. CARAVEL [Concomitant]
     Indication: Product used for unknown indication
     Dosage: 25 MILLIGRAM (25 MG 1/2 CP 2 VOLTE DIE)
     Route: 048
  8. LYRICA [Concomitant]
     Active Substance: PREGABALIN
     Indication: Product used for unknown indication
     Dosage: 150 MILLIGRAM (150 MG 1 CP 2 VOLTE DIE)
     Route: 048
  9. PANTOPRAZOLE SODIUM [Concomitant]
     Active Substance: PANTOPRAZOLE SODIUM
     Indication: Product used for unknown indication
     Dosage: 40 MILLIGRAM
     Route: 048
  10. Tavor [Concomitant]
     Indication: Product used for unknown indication
     Dosage: 2.5 MILLIGRAM (2.5 MG 1/2 CP A PRANZO E 1/2 A CENA)
     Route: 048

REACTIONS (2)
  - Tachycardia [Recovered/Resolved with Sequelae]
  - Sopor [Recovered/Resolved with Sequelae]

NARRATIVE: CASE EVENT DATE: 20231006
